FAERS Safety Report 9955205 (Version 1)
Quarter: 2014Q1

REPORT INFORMATION
  Report Type: Report from Study
  Country: US (occurrence: US)
  Receive Date: 20140304
  Receipt Date: 20140304
  Transmission Date: 20141002
  Serious: Yes (Other)
  Sender: FDA-Public Use
  Company Number: US-ABBVIE-13P-163-1074916-00

PATIENT
  Age: 19 Year
  Sex: Female

DRUGS (11)
  1. HUMIRA PEN [Suspect]
     Indication: PSORIASIS
     Route: 058
     Dates: start: 200901, end: 200904
  2. HUMIRA PEN [Suspect]
     Route: 058
     Dates: start: 200906, end: 201111
  3. HUMIRA PEN [Suspect]
     Route: 058
     Dates: start: 201201, end: 201303
  4. ORTHO EVRA [Suspect]
     Indication: OVARIAN CYST
     Dates: start: 2001, end: 2008
  5. YASMIN [Suspect]
     Indication: OVARIAN CYST
     Dates: start: 2008, end: 201201
  6. BIRTH CONTROL [Concomitant]
     Indication: CONTRACEPTION
  7. VIIBRYD [Concomitant]
     Indication: DEPRESSION
  8. ATIVAN [Concomitant]
     Indication: ANXIETY
  9. AMITRIPTYLINE [Concomitant]
     Indication: MIGRAINE PROPHYLAXIS
  10. AMITRIPTYLINE [Concomitant]
     Indication: INSOMNIA
  11. DEPO PROVERA [Concomitant]
     Indication: OVARIAN CYST
     Dates: start: 201204

REACTIONS (18)
  - Tonsillitis [Recovered/Resolved]
  - Infectious mononucleosis [Recovered/Resolved]
  - Bronchitis [Recovered/Resolved]
  - Ear infection [Recovered/Resolved]
  - Sinus congestion [Recovered/Resolved]
  - Oropharyngeal pain [Recovered/Resolved]
  - Pharyngitis streptococcal [Recovered/Resolved]
  - Bronchitis [Recovered/Resolved]
  - Asthma [Not Recovered/Not Resolved]
  - Pleurisy [Recovered/Resolved]
  - Chest pain [Recovered/Resolved]
  - Back pain [Recovered/Resolved]
  - Flank pain [Recovered/Resolved]
  - Arthralgia [Not Recovered/Not Resolved]
  - Arthralgia [Not Recovered/Not Resolved]
  - Palpitations [Not Recovered/Not Resolved]
  - Focal nodular hyperplasia [Not Recovered/Not Resolved]
  - Psoriasis [Not Recovered/Not Resolved]
